FAERS Safety Report 4360951-3 (Version None)
Quarter: 2004Q2

REPORT INFORMATION
  Report Type: 
  Country: None (occurrence: None)
  Receive Date: 20040517
  Receipt Date: 20040506
  Transmission Date: 20050107
  Serious: Yes (Other)
  Sender: FDA-Public Use
  Company Number: 2003117265

PATIENT
  Age: 60 Year
  Sex: Male

DRUGS (10)
  1. LIPITOR [Suspect]
     Indication: HYPERCHOLESTEROLAEMIA
     Dosage: 10 MG (10 MG, 1 IN 1 D), ORAL
     Route: 048
     Dates: start: 20021213, end: 20030716
  2. AMLODIPINE [Concomitant]
  3. CANDESARTAN CILEXETIL (CANDESARTAN CILEXETIL) [Concomitant]
  4. ISORBIDE MONONITRATE (ISOSORBIDE MONONITRATE) [Concomitant]
  5. NICORANDIL (NICORANDIL) [Concomitant]
  6. FAMOTIDINE [Concomitant]
  7. ACETYLSALICYLIC ACID SRT [Concomitant]
  8. MECOBALAMIN (MECOBALAMIN) [Concomitant]
  9. NILVADIPINE (NILVADIPINE) [Concomitant]
  10. PRAVASTATIN SODIUM [Concomitant]

REACTIONS (4)
  - BLOOD CHOLESTEROL INCREASED [None]
  - BLOOD TRIGLYCERIDES INCREASED [None]
  - GAMMA-GLUTAMYLTRANSFERASE INCREASED [None]
  - HIGH DENSITY LIPOPROTEIN DECREASED [None]
